FAERS Safety Report 7747639-3 (Version None)
Quarter: 2011Q3

REPORT INFORMATION
  Report Type: 
  Country: None (occurrence: None)
  Receive Date: 20110913
  Receipt Date: 20110912
  Transmission Date: 20111222
  Serious: Yes (Death)
  Sender: FDA-Public Use
  Company Number: VE-PFIZER INC-2011208032

PATIENT
  Age: 69 Year
  Sex: Female

DRUGS (3)
  1. CATAPRESAN [Concomitant]
     Indication: HYPERTENSION
     Dosage: 0.150 MG, 3X/DAY
     Route: 048
  2. LANTUS [Concomitant]
     Indication: DIABETES MELLITUS
     Dosage: UNK
     Route: 058
  3. LIPITOR [Suspect]
     Dosage: 40 MG, 1X/DAY
     Route: 048

REACTIONS (1)
  - RESPIRATORY ARREST [None]
